FAERS Safety Report 10108558 (Version 3)
Quarter: 2015Q2

REPORT INFORMATION
  Report Type: Report from Study
  Country: DE (occurrence: DE)
  Receive Date: 20140425
  Receipt Date: 20150615
  Transmission Date: 20150821
  Serious: Yes (Hospitalization)
  Sender: FDA-Public Use
  Company Number: DE-009507513-1404DEU010575

PATIENT
  Age: 56 Year
  Sex: Male

DRUGS (12)
  1. BOCEPREVIR [Suspect]
     Active Substance: BOCEPREVIR
     Indication: HEPATITIS C
     Dosage: 4 DF, TID (FREQUENCY: 3 X 4 TABS)
     Route: 048
     Dates: start: 20130730
  2. PEGINTERFERON ALFA-2B [Suspect]
     Active Substance: PEGINTERFERON ALFA-2B
     Indication: HEPATITIS C
     Dosage: UNK
     Route: 058
     Dates: start: 20130605, end: 20130828
  3. RIBAVIRIN. [Suspect]
     Active Substance: RIBAVIRIN
     Indication: HEPATITIS C
     Dosage: TOTAL DAILY DOSE 1000 MG, FREQUENCY: 5 TIMES PER DAY
     Dates: start: 20130605
  4. LACTULOSE. [Concomitant]
     Active Substance: LACTULOSE
     Dosage: 10 ML, BID
  5. SPIRONOLACTONE. [Concomitant]
     Active Substance: SPIRONOLACTONE
     Dosage: 100 MG, QD
  6. FUROSEMIDE. [Concomitant]
     Active Substance: FUROSEMIDE
     Dosage: 40 MG, BID
  7. TAZOBAC [Concomitant]
     Active Substance: PIPERACILLIN SODIUM\TAZOBACTAM SODIUM
     Dosage: 4/0.5 G, TID
  8. TOREM [Concomitant]
     Active Substance: TORSEMIDE
     Dosage: 5 MG, INTERRUPTED
  9. KONAKION [Concomitant]
     Active Substance: PHYTONADIONE
     Dosage: 20 ML, QD (FORMULATION: DROPS)
  10. SAB SIMPLEX [Concomitant]
     Dosage: 20 ML, BID, DROPS
  11. PEGINTERFERON ALFA-2B [Suspect]
     Active Substance: PEGINTERFERON ALFA-2B
     Indication: HEPATITIS C
     Dosage: UNK
     Route: 058
     Dates: start: 20130828
  12. PANTOZOL [Concomitant]
     Active Substance: PANTOPRAZOLE SODIUM
     Dosage: 40 MG, BID

REACTIONS (9)
  - Bone marrow failure [Unknown]
  - Oedema peripheral [Unknown]
  - Abdominal pain [Unknown]
  - Dyspnoea [Unknown]
  - Anaemia [Unknown]
  - Diarrhoea [Unknown]
  - Hepatic cirrhosis [Unknown]
  - Hepatorenal syndrome [Unknown]
  - Depression [Unknown]
